FAERS Safety Report 6981690-6 (Version None)
Quarter: 2010Q3

REPORT INFORMATION
  Report Type: 
  Country: None (occurrence: None)
  Receive Date: 20100914
  Receipt Date: 20090730
  Transmission Date: 20110219
  Serious: No
  Sender: FDA-Public Use
  Company Number: US-PFIZER INC-2009249434

PATIENT
  Sex: Male

DRUGS (5)
  1. LYRICA [Suspect]
     Indication: NEURALGIA
     Dosage: 150 MG, 2X/DAY
  2. DARVON [Concomitant]
     Dosage: UNK
  3. DEMEROL [Concomitant]
     Dosage: UNK
  4. SOMA [Concomitant]
     Dosage: UNK
  5. IBUPROFEN [Concomitant]
     Dosage: UNK

REACTIONS (4)
  - BONE PAIN [None]
  - DIZZINESS [None]
  - JOINT STIFFNESS [None]
  - PAIN [None]
